FAERS Safety Report 4499608-7 (Version None)
Quarter: 2004Q4

REPORT INFORMATION
  Report Type: 
  Country: None (occurrence: None)
  Receive Date: 20040928
  Receipt Date: 20040819
  Transmission Date: 20050328
  Serious: No
  Sender: FDA-Public Use
  Company Number: 04P-163-0270996-00

PATIENT
  Age: 66 Year
  Sex: Female

DRUGS (4)
  1. HUMIRA [Suspect]
     Indication: RHEUMATOID ARTHRITIS
     Dosage: 40 MG, 1 IN 2 WK, SUBCUTANEOUS
     Route: 058
     Dates: start: 20030101, end: 20040805
  2. HYDROXYCHLOROQUINE PHOSPHATE [Concomitant]
  3. ALLENDRONATE SODIUM [Concomitant]
  4. PARACETAMOL [Concomitant]

REACTIONS (2)
  - ARTHRALGIA [None]
  - BLOOD URINE [None]
